FAERS Safety Report 13194112 (Version 1)
Quarter: 2017Q1

REPORT INFORMATION
  Report Type: Report from Study
  Country: CA (occurrence: CA)
  Receive Date: 20170207
  Receipt Date: 20170207
  Transmission Date: 20170428
  Serious: Yes (Death)
  Sender: FDA-Public Use
  Company Number: CA-SA-2015SA027101

PATIENT
  Age: 46 Year
  Sex: Female
  Weight: 59.9 kg

DRUGS (18)
  1. DILAUDID [Concomitant]
     Active Substance: HYDROMORPHONE HYDROCHLORIDE
     Route: 065
  2. EVENING PRIMROSE OIL [Concomitant]
     Active Substance: EVENING PRIMROSE OIL
     Route: 065
  3. AMITRIPTYLINE [Concomitant]
     Active Substance: AMITRIPTYLINE
     Route: 065
  4. TAXOTERE [Suspect]
     Active Substance: DOCETAXEL
     Indication: HER-2 POSITIVE BREAST CANCER
     Dosage: FORM SOLUTION INTRAVENOUS
     Route: 042
  5. SINGULAIR [Concomitant]
     Active Substance: MONTELUKAST SODIUM
     Route: 065
  6. HERCEPTIN [Suspect]
     Active Substance: TRASTUZUMAB
     Indication: BREAST CANCER
     Route: 042
  7. HERCEPTIN [Suspect]
     Active Substance: TRASTUZUMAB
     Indication: BREAST CANCER
     Route: 042
     Dates: start: 20150220, end: 20150220
  8. LOSEC [Concomitant]
     Active Substance: OMEPRAZOLE
     Route: 065
  9. DECADRON [Concomitant]
     Active Substance: DEXAMETHASONE
     Route: 065
  10. HYDROMORPH CONTIN [Concomitant]
     Active Substance: HYDROMORPHONE
     Route: 065
  11. HYDROMORPH CONTIN [Concomitant]
     Active Substance: HYDROMORPHONE
     Route: 065
  12. RESTORALAX [Concomitant]
     Active Substance: POLYETHYLENE GLYCOL 3350
     Route: 065
  13. PERJETA [Suspect]
     Active Substance: PERTUZUMAB
     Indication: HER-2 POSITIVE BREAST CANCER
     Dosage: FORM SOLUTION INTRAVENOUS, THERAPY DURATION 71.0 DAY?CONCENTRATE SOLUTION
     Route: 042
     Dates: start: 20141211, end: 20141211
  14. SENOKOT [Concomitant]
     Active Substance: SENNOSIDES
     Route: 065
  15. TAMOXIFEN [Concomitant]
     Active Substance: TAMOXIFEN
     Route: 065
  16. KADCYLA [Suspect]
     Active Substance: ADO-TRASTUZUMAB EMTANSINE
     Indication: HER-2 POSITIVE BREAST CANCER
     Dosage: 100MG AND 160MG SINGLE-USE VIALS
     Route: 042
  17. ATIVAN [Concomitant]
     Active Substance: LORAZEPAM
     Route: 065
  18. VITAMIN E [Concomitant]
     Active Substance: .ALPHA.-TOCOPHEROL
     Route: 065

REACTIONS (5)
  - Malignant neoplasm progression [Fatal]
  - Weight fluctuation [Fatal]
  - Neoplasm progression [Fatal]
  - Death [Fatal]
  - Drug ineffective [Unknown]
